FAERS Safety Report 21644920 (Version 2)
Quarter: 2024Q3

REPORT INFORMATION
  Report Type: Spontaneous
  Country: US (occurrence: US)
  Receive Date: 20221125
  Receipt Date: 20240703
  Transmission Date: 20241016
  Serious: No
  Sender: PURDUE
  Company Number: US-PURDUE-USA-2022-0298015

PATIENT
  Age: 67 Year
  Sex: Male
  Weight: 117.93 kg

DRUGS (5)
  1. HYDROCODONE BITARTRATE [Suspect]
     Active Substance: HYDROCODONE BITARTRATE
     Indication: Analgesic therapy
     Dosage: 60 MILLIGRAM
     Route: 065
  2. HYDROCODONE BITARTRATE [Suspect]
     Active Substance: HYDROCODONE BITARTRATE
     Dosage: (5/325)
     Route: 065
  3. HYSINGLA ER [Suspect]
     Active Substance: HYDROCODONE BITARTRATE
     Indication: Analgesic therapy
     Dosage: 80 MILLIGRAM, DAILY (FOR SEVERE BACK PAIN AND SEVERE OSTEOARTHRITIS AND RHEUMATOID ARTHRITIS)
     Route: 048
     Dates: start: 20240201, end: 20240701
  4. HYSINGLA ER [Suspect]
     Active Substance: HYDROCODONE BITARTRATE
     Dosage: 40 MILLIGRAM, BID
     Route: 048
  5. HYSINGLA ER [Suspect]
     Active Substance: HYDROCODONE BITARTRATE
     Dosage: 30 MILLIGRAM
     Route: 048

REACTIONS (2)
  - Therapeutic product effect incomplete [Unknown]
  - Inadequate analgesia [Unknown]

NARRATIVE: CASE EVENT DATE: 20240201
